FAERS Safety Report 7680181-7 (Version None)
Quarter: 2011Q3

REPORT INFORMATION
  Report Type: 
  Country: None (occurrence: None)
  Receive Date: 20110812
  Receipt Date: 20110804
  Transmission Date: 20111222
  Serious: Yes (Death)
  Sender: FDA-Public Use
  Company Number: FR-ROCHE-795158

PATIENT
  Sex: Female

DRUGS (1)
  1. ISOTRETINOIN [Suspect]
     Dosage: FREQUENCY: DAILY
     Route: 048
     Dates: start: 20000901, end: 20110701

REACTIONS (2)
  - DEPRESSION [None]
  - COMPLETED SUICIDE [None]
